FAERS Safety Report 20497467 (Version 1)
Quarter: 2022Q1

REPORT INFORMATION
  Report Type: Report from Study
  Country: US (occurrence: US)
  Receive Date: 20220221
  Receipt Date: 20220221
  Transmission Date: 20220423
  Serious: Yes (Other)
  Sender: FDA-Public Use
  Company Number: US-ABBVIE-22K-163-4282857-00

PATIENT
  Age: 37 Year
  Sex: Female

DRUGS (4)
  1. HUMIRA [Suspect]
     Active Substance: ADALIMUMAB
     Indication: Psoriasis
     Dosage: CITRATE FREE
     Route: 058
  2. PFIZER-BIONTECH COVID-19 VACCINE [Concomitant]
     Active Substance: TOZINAMERAN
     Indication: COVID-19 immunisation
     Dosage: FIRST DOSE
     Route: 030
     Dates: start: 20210315, end: 20210315
  3. PFIZER-BIONTECH COVID-19 VACCINE [Concomitant]
     Active Substance: TOZINAMERAN
     Dosage: SECOND DOSE
     Route: 030
     Dates: start: 20210415, end: 20210415
  4. PFIZER-BIONTECH COVID-19 VACCINE [Concomitant]
     Active Substance: TOZINAMERAN
     Dosage: THIRD OR BOOSTER DOSE
     Route: 030
     Dates: start: 20210901, end: 20210901

REACTIONS (21)
  - Spinal fracture [Recovering/Resolving]
  - Spinal operation [Recovering/Resolving]
  - Scar [Recovering/Resolving]
  - Psoriasis [Recovering/Resolving]
  - Blister [Recovering/Resolving]
  - Cough [Unknown]
  - Nausea [Unknown]
  - Hypersomnia [Unknown]
  - Urinary tract infection [Not Recovered/Not Resolved]
  - Haemorrhage urinary tract [Recovered/Resolved]
  - Gait disturbance [Recovered/Resolved]
  - Back pain [Unknown]
  - Constipation [Recovered/Resolved]
  - Uterine hypotonus [Recovered/Resolved]
  - Urinary tract infection [Recovered/Resolved]
  - Bladder prolapse [Recovered/Resolved]
  - Pain in extremity [Unknown]
  - Pain in extremity [Unknown]
  - Skin ulcer [Not Recovered/Not Resolved]
  - Wound complication [Not Recovered/Not Resolved]
  - Parkinson^s disease [Not Recovered/Not Resolved]

NARRATIVE: CASE EVENT DATE: 19960509
